FAERS Safety Report 17306285 (Version 1)
Quarter: 2020Q1

REPORT INFORMATION
  Report Type: Spontaneous
  Country: US (occurrence: US)
  Receive Date: 20200106
  Receipt Date: 20200106
  Transmission Date: 20200409
  Serious: Yes (Hospitalization)
  Sender: FDA-Public Use
  Company Number: None

PATIENT
  Age: 66 Year
  Sex: Male
  Weight: 98 kg

DRUGS (1)
  1. CIPROFLOXACIN (CIPROFLOXACIN 500MG TAB SA) [Suspect]
     Active Substance: CIPROFLOXACIN
     Indication: UPPER RESPIRATORY TRACT INFECTION
     Route: 048
     Dates: start: 20110401, end: 20110411

REACTIONS (2)
  - Dehydration [None]
  - Clostridium difficile infection [None]

NARRATIVE: CASE EVENT DATE: 20110421
